FAERS Safety Report 8456230-5 (Version None)
Quarter: 2012Q2

REPORT INFORMATION
  Report Type: 
  Country: None (occurrence: None)
  Receive Date: 20120621
  Receipt Date: 20120618
  Transmission Date: 20120825
  Serious: Yes (Death, Hospitalization)
  Sender: FDA-Public Use
  Company Number: US-ABBOTT-12P-163-0947041-00

PATIENT
  Sex: Female

DRUGS (4)
  1. PREDNISONE TAB [Concomitant]
     Indication: CROHN'S DISEASE
  2. IMURAN [Concomitant]
     Indication: CROHN'S DISEASE
  3. HUMIRA [Suspect]
     Indication: CROHN'S DISEASE
     Dates: start: 20100101, end: 20120101
  4. AZULFADINE [Concomitant]
     Indication: CROHN'S DISEASE

REACTIONS (6)
  - POST PROCEDURAL COMPLICATION [None]
  - INJECTION SITE ERYTHEMA [None]
  - GASTRIC CANCER [None]
  - BILE DUCT CANCER [None]
  - INFECTION [None]
  - INJECTION SITE INDURATION [None]
